FAERS Safety Report 7761736-8 (Version None)
Quarter: 2011Q3

REPORT INFORMATION
  Report Type: 
  Country: None (occurrence: None)
  Receive Date: 20110920
  Receipt Date: 20110912
  Transmission Date: 20111222
  Serious: No
  Sender: FDA-Public Use
  Company Number: PHHY2010MX62461

PATIENT
  Age: 57 Year
  Sex: Female

DRUGS (6)
  1. CALCIUM CARBONATE [Concomitant]
     Indication: OSTEOPOROSIS
  2. ZOLEDRONOC ACID [Suspect]
     Indication: OSTEOPOROSIS
     Dosage: 5 MG, PER YEAR
     Route: 042
     Dates: start: 20090901
  3. ARTIFICIAL TEARS [Concomitant]
     Indication: DRY EYE
  4. CALCITRIOL [Concomitant]
     Indication: OSTEOPOROSIS
  5. CELEBREX [Concomitant]
     Indication: ARTHRITIS
  6. METHOTREXATE [Concomitant]
     Indication: ARTHRITIS

REACTIONS (3)
  - INFLUENZA LIKE ILLNESS [None]
  - PAIN [None]
  - FATIGUE [None]
